FAERS Safety Report 7496442-0 (Version None)
Quarter: 2011Q2

REPORT INFORMATION
  Report Type: 
  Country: None (occurrence: None)
  Receive Date: 20110523
  Receipt Date: 20110516
  Transmission Date: 20111010
  Serious: Yes (Hospitalization, Congenital Anomaly, Other)
  Sender: FDA-Public Use
  Company Number: US-PFIZER INC-2011105367

PATIENT
  Sex: Male
  Weight: 3 kg

DRUGS (2)
  1. ZOLOFT [Suspect]
     Dosage: 100 MG, UNK
     Route: 064
     Dates: start: 20090101
  2. NITROFURANTOIN [Concomitant]
     Dosage: 100 MG, UNK
     Dates: start: 20100514

REACTIONS (12)
  - FALLOT'S TETRALOGY [None]
  - ATRIAL SEPTAL DEFECT [None]
  - WEIGHT INCREASED [None]
  - PATENT DUCTUS ARTERIOSUS [None]
  - PULMONARY VALVE INCOMPETENCE [None]
  - VENTRICULAR HYPOPLASIA [None]
  - HEAD INJURY [None]
  - CARDIOMEGALY [None]
  - VOMITING [None]
  - PERICARDIAL EFFUSION [None]
  - TORTICOLLIS [None]
  - DRUG EXPOSURE DURING PREGNANCY [None]
